FAERS Safety Report 6728855-6 (Version None)
Quarter: 2010Q2

REPORT INFORMATION
  Report Type: 
  Country: None (occurrence: None)
  Receive Date: 20100517
  Receipt Date: 20100506
  Transmission Date: 20101027
  Serious: Yes (Other)
  Sender: FDA-Public Use
  Company Number: US-JNJFOC-20100503493

PATIENT

DRUGS (2)
  1. TYLENOL INFANT UNSPECIFIED [Suspect]
     Route: 065
  2. TYLENOL INFANT UNSPECIFIED [Suspect]
     Indication: DRUG USE FOR UNKNOWN INDICATION
     Route: 065

REACTIONS (2)
  - FEBRILE CONVULSION [None]
  - PRODUCT QUALITY ISSUE [None]
